FAERS Safety Report 6415721-9 (Version None)
Quarter: 2009Q4

REPORT INFORMATION
  Report Type: 
  Country: None (occurrence: None)
  Receive Date: 20091027
  Receipt Date: 20091014
  Transmission Date: 20100525
  Serious: Yes (Other)
  Sender: FDA-Public Use
  Company Number: AU-PFIZER INC-2009283273

PATIENT
  Age: 50 Year

DRUGS (2)
  1. ZELDOX [Suspect]
     Indication: SCHIZOPHRENIA
     Dosage: 80 MG, 2X/DAY
  2. OLANZAPINE [Suspect]

REACTIONS (2)
  - SOMATIC DELUSION [None]
  - WEIGHT INCREASED [None]
